FAERS Safety Report 9019746 (Version 1)
Quarter: 2013Q1

REPORT INFORMATION
  Report Type: Spontaneous
  Country: US (occurrence: US)
  Receive Date: 20130119
  Receipt Date: 20130119
  Transmission Date: 20140127
  Serious: No
  Sender: FDA-Public Use
  Company Number: US-TEVA-380816USA

PATIENT
  Sex: Male

DRUGS (3)
  1. PROAIR HFA [Suspect]
     Indication: CHRONIC OBSTRUCTIVE PULMONARY DISEASE
  2. ADVAIR [Concomitant]
  3. IPRATROPIUM BROMIDE W/SALBUTAMOL [Concomitant]

REACTIONS (1)
  - Tremor [Not Recovered/Not Resolved]
